FAERS Safety Report 11618155 (Version 1)
Quarter: 2015Q4

REPORT INFORMATION
  Report Type: Spontaneous
  Country: NG (occurrence: NG)
  Receive Date: 20151010
  Receipt Date: 20151010
  Transmission Date: 20160304
  Serious: Yes (Other)
  Sender: FDA-Public Use
  Company Number: PHHY2015NG122278

PATIENT
  Age: 58 Year

DRUGS (2)
  1. ZOMETA [Suspect]
     Active Substance: ZOLEDRONIC ACID
     Indication: PROSTATE CANCER
     Route: 065
  2. ZOLADEX [Concomitant]
     Active Substance: GOSERELIN ACETATE
     Indication: PRODUCT USED FOR UNKNOWN INDICATION
     Route: 065

REACTIONS (2)
  - Sepsis [Unknown]
  - Folliculitis [Unknown]
